FAERS Safety Report 4618929-8 (Version None)
Quarter: 2005Q2

REPORT INFORMATION
  Report Type: 
  Country: None (occurrence: None)
  Receive Date: 20050302
  Receipt Date: 20040712
  Transmission Date: 20051028
  Serious: Yes (Hospitalization)
  Sender: FDA-Public Use
  Company Number: 1199612431

PATIENT
  Age: 62 Year
  Sex: Female

DRUGS (9)
  1. TRASYLOL [Suspect]
     Indication: CORONARY ARTERY SURGERY
     Dosage: 1 ML, TOTAL DAILY, INTRAVENOUS
     Route: 042
     Dates: start: 19960705
  2. TRASYLOL [Suspect]
     Indication: SURGICAL PROCEDURE REPEATED
     Dosage: 1 ML, TOTAL DAILY, INTRAVENOUS
     Route: 042
     Dates: start: 19960705
  3. HEPARIN [Concomitant]
  4. DOPAMINE HCL [Concomitant]
  5. ADALAT [Concomitant]
  6. ZOLOFT [Concomitant]
  7. PROPULSID [Concomitant]
  8. ZOCOR [Concomitant]
  9. GLUCOTROL [Concomitant]

REACTIONS (2)
  - ANAPHYLACTIC REACTION [None]
  - HYPOTENSION [None]
